FAERS Safety Report 12781534 (Version 2)
Quarter: 2016Q4

REPORT INFORMATION
  Report Type: Spontaneous
  Country: CH (occurrence: CH)
  Receive Date: 20160926
  Receipt Date: 20161011
  Transmission Date: 20170207
  Serious: Yes (Hospitalization)
  Sender: FDA-Public Use
  Company Number: CH-PFIZER INC-2016443421

PATIENT
  Age: 50 Year
  Sex: Male
  Weight: 115 kg

DRUGS (8)
  1. SERESTA [Suspect]
     Active Substance: OXAZEPAM
     Dosage: 30 MG, 3X/DAY
     Route: 048
  2. ZYPREXA [Suspect]
     Active Substance: OLANZAPINE
     Dosage: 5 MG, 2X/DAY
     Route: 048
  3. LITHIUM. [Concomitant]
     Active Substance: LITHIUM
     Dosage: 900 MG, 1X/DAY
     Route: 048
  4. KETALGIN NOS [Suspect]
     Active Substance: KETOROLAC TROMETHAMINE OR METHADONE
     Dosage: 75 MG, 1X/DAY (15 DF)
     Route: 048
     Dates: start: 201511
  5. STILNOX CR [Suspect]
     Active Substance: ZOLPIDEM TARTRATE
     Dosage: 12.5 MG, 1X/DAY
     Route: 048
     Dates: end: 201607
  6. XANAX [Suspect]
     Active Substance: ALPRAZOLAM
     Dosage: 1 MG, 3X/DAY
     Route: 048
  7. SIMVASTATIN MEPHA [Concomitant]
     Active Substance: SIMVASTATIN
     Dosage: 40 MG, 1X/DAY
     Route: 048
  8. ZYPREXA [Suspect]
     Active Substance: OLANZAPINE
     Dosage: 10 MG, 1X/DAY (0-0-0-10 MG)
     Route: 048

REACTIONS (10)
  - Fall [Recovered/Resolved]
  - Rib fracture [Unknown]
  - Glucocorticoid deficiency [Recovered/Resolved]
  - Disorientation [Unknown]
  - Psychomotor retardation [Recovered/Resolved]
  - Hypogonadism [Unknown]
  - Hyperprolactinaemia [Unknown]
  - Laceration [Unknown]
  - Contusion [Unknown]
  - Memory impairment [Unknown]

NARRATIVE: CASE EVENT DATE: 20160727
